FAERS Safety Report 13742110 (Version 1)
Quarter: 2017Q3

REPORT INFORMATION
  Report Type: Spontaneous
  Country: JP (occurrence: JP)
  Receive Date: 20170711
  Receipt Date: 20170711
  Transmission Date: 20171127
  Serious: Yes (Hospitalization)
  Sender: FDA-Public Use
  Company Number: PHJP2017JP008686

PATIENT
  Age: 72 Year
  Sex: Female

DRUGS (3)
  1. AFINITOR [Suspect]
     Active Substance: EVEROLIMUS
     Indication: BREAST CANCER RECURRENT
     Dosage: 10 MG, QD
     Route: 048
     Dates: start: 20160311, end: 20160509
  2. AFINITOR [Suspect]
     Active Substance: EVEROLIMUS
     Dosage: UNK
     Route: 048
     Dates: start: 20160912
  3. EXEMESTANE. [Concomitant]
     Active Substance: EXEMESTANE
     Indication: BREAST CANCER
     Dosage: UNK
     Route: 065
     Dates: start: 20160311

REACTIONS (10)
  - Headache [Recovering/Resolving]
  - Cough [Unknown]
  - Meningitis cryptococcal [Recovering/Resolving]
  - Photophobia [Recovering/Resolving]
  - Neck pain [Recovering/Resolving]
  - VIth nerve paralysis [Unknown]
  - CSF pressure increased [Unknown]
  - Pyrexia [Unknown]
  - Interstitial lung disease [Unknown]
  - Vomiting [Unknown]

NARRATIVE: CASE EVENT DATE: 20160509
